FAERS Safety Report 6936077-9 (Version None)
Quarter: 2010Q3

REPORT INFORMATION
  Report Type: 
  Country: None (occurrence: None)
  Receive Date: 20100819
  Receipt Date: 20100819
  Transmission Date: 20110219
  Serious: Yes (Other)
  Sender: FDA-Public Use
  Company Number: None

PATIENT
  Sex: Male

DRUGS (3)
  1. HUMIRA [Suspect]
     Indication: DERMATITIS
     Dosage: 40 MG Q 2WKS SQ
     Route: 058
  2. HUMIRA [Suspect]
     Indication: ECZEMA
     Dosage: 40 MG Q 2WKS SQ
     Route: 058
  3. HUMIRA [Suspect]
     Indication: PSORIASIS
     Dosage: 40 MG Q 2WKS SQ
     Route: 058

REACTIONS (4)
  - ARTHRALGIA [None]
  - HYPOAESTHESIA [None]
  - PARAESTHESIA [None]
  - SKIN LESION [None]
